FAERS Safety Report 17434620 (Version 5)
Quarter: 2021Q3

REPORT INFORMATION
  Report Type: Spontaneous
  Country: US (occurrence: US)
  Receive Date: 20200219
  Receipt Date: 20210816
  Transmission Date: 20211014
  Serious: Yes (Other)
  Sender: FDA-Public Use
  Company Number: US-JNJFOC-20200227446

PATIENT
  Age: 12 Year
  Sex: Male

DRUGS (2)
  1. RISPERDAL [Suspect]
     Active Substance: RISPERIDONE
     Indication: BIPOLAR DISORDER
     Dosage: IN VARYING DOSE OF 0.5 AND 4 MG
     Route: 048
     Dates: start: 20001122, end: 20021216
  2. RISPERDAL [Suspect]
     Active Substance: RISPERIDONE
     Dosage: 01 MG IN MORNING AND 1.5 MG AT BEDTIME
     Route: 048
     Dates: start: 200212, end: 20021231

REACTIONS (4)
  - Gynaecomastia [Unknown]
  - Product dose omission issue [Unknown]
  - Emotional distress [Unknown]
  - Obesity [Unknown]

NARRATIVE: CASE EVENT DATE: 200212
